FAERS Safety Report 15552117 (Version 1)
Quarter: 2018Q4

REPORT INFORMATION
  Report Type: Spontaneous
  Country: JP (occurrence: JP)
  Receive Date: 20181025
  Receipt Date: 20181025
  Transmission Date: 20190205
  Serious: Yes (Hospitalization)
  Sender: FDA-Public Use
  Company Number: JP-EISAI MEDICAL RESEARCH-EC-2018-046184

PATIENT
  Age: 72 Year
  Sex: Male

DRUGS (2)
  1. HALAVEN [Suspect]
     Active Substance: ERIBULIN MESYLATE
     Route: 041
     Dates: start: 20180928, end: 20180928
  2. HALAVEN [Suspect]
     Active Substance: ERIBULIN MESYLATE
     Indication: ANGIOSARCOMA
     Route: 041
     Dates: start: 20180907, end: 20180914

REACTIONS (1)
  - Neuropathy peripheral [Not Recovered/Not Resolved]

NARRATIVE: CASE EVENT DATE: 20180914
